FAERS Safety Report 14196635 (Version 2)
Quarter: 2017Q4

REPORT INFORMATION
  Report Type: Spontaneous
  Country: FR (occurrence: FR)
  Receive Date: 20171116
  Receipt Date: 20171204
  Transmission Date: 20180321
  Serious: Yes (Other)
  Sender: FDA-Public Use
  Company Number: FR-MERCK KGAA-2034387

PATIENT
  Age: 60 Year
  Sex: Female

DRUGS (1)
  1. NOVOTHYROX [Suspect]
     Active Substance: LEVOTHYROXINE SODIUM
     Indication: PRODUCT USED FOR UNKNOWN INDICATION
     Dates: start: 201708, end: 201710

REACTIONS (15)
  - Dysentery [None]
  - Angina pectoris [None]
  - Alopecia [None]
  - Skin haemorrhage [None]
  - Vertigo [None]
  - Muscle spasms [None]
  - Malaise [None]
  - Pruritus [None]
  - Cardiac disorder [None]
  - Rash [None]
  - Headache [None]
  - Fatigue [None]
  - Fall [None]
  - Pulmonary hypertension [None]
  - Depression [None]

NARRATIVE: CASE EVENT DATE: 2017
